FAERS Safety Report 23188399 (Version 1)
Quarter: 2023Q4

REPORT INFORMATION
  Report Type: Spontaneous
  Country: DE (occurrence: DE)
  Receive Date: 20231115
  Receipt Date: 20231115
  Transmission Date: 20240109
  Serious: Yes (Other)
  Sender: FDA-Public Use
  Company Number: DE-Covis Pharma Europe B.V.-2023COV01709

PATIENT
  Age: 72 Year
  Sex: Male

DRUGS (3)
  1. ACLIDINIUM BROMIDE [Suspect]
     Active Substance: ACLIDINIUM BROMIDE
     Indication: Product used for unknown indication
     Route: 065
     Dates: start: 202309, end: 20231004
  2. ATORVASTATIN [Suspect]
     Active Substance: ATORVASTATIN
  3. HERBALS [Suspect]
     Active Substance: HERBALS

REACTIONS (1)
  - Diplopia [Unknown]
